FAERS Safety Report 10083989 (Version 2)
Quarter: 2014Q2

REPORT INFORMATION
  Report Type: Spontaneous
  Country: US (occurrence: US)
  Receive Date: 20140417
  Receipt Date: 20140520
  Transmission Date: 20141212
  Serious: No
  Sender: FDA-Public Use
  Company Number: US-009507513-1404USA006189

PATIENT
  Sex: Female
  Weight: 79.37 kg

DRUGS (8)
  1. OXYTROL FOR WOMEN [Suspect]
     Indication: URINARY INCONTINENCE
     Dosage: 1 DF, Q4D
     Route: 062
     Dates: start: 201401
  2. OXYTROL FOR WOMEN [Suspect]
     Dosage: UNK, UNKNOWN
     Route: 062
     Dates: start: 201402
  3. PLAVIX [Concomitant]
     Indication: CAROTID ARTERY OCCLUSION
     Dosage: UNK, UNKNOWN
  4. LIPITOR [Concomitant]
     Indication: BLOOD CHOLESTEROL DECREASED
     Dosage: UNK, UNKNOWN
  5. ZETIA [Concomitant]
     Indication: BLOOD CHOLESTEROL DECREASED
  6. ASPIRIN [Concomitant]
     Indication: CAROTID ARTERY OCCLUSION
     Dosage: UNK, UNKNOWN
  7. LOTREL [Concomitant]
     Indication: HYPERTENSION
     Dosage: UNK, UNKNOWN
  8. CELEBREX [Concomitant]
     Indication: ARTHRITIS
     Dosage: UNK, UNKNOWN

REACTIONS (6)
  - Rash erythematous [Recovered/Resolved]
  - Inflammation [Unknown]
  - Pruritus [Recovered/Resolved]
  - Erythema [Recovered/Resolved]
  - Drug ineffective [Unknown]
  - Product adhesion issue [Unknown]
